FAERS Safety Report 4874972-5 (Version None)
Quarter: 2006Q1

REPORT INFORMATION
  Report Type: 
  Country: None (occurrence: None)
  Receive Date: 20060105
  Receipt Date: 20051220
  Transmission Date: 20060701
  Serious: Yes (Other)
  Sender: FDA-Public Use
  Company Number: 006346

PATIENT
  Age: 20 Year
  Sex: Male

DRUGS (2)
  1. CLARAVIS [Suspect]
     Indication: ACNE
     Dosage: 20 MG, QD, ORAL
     Route: 048
     Dates: start: 20030307, end: 20030427
  2. CLARAVIS [Suspect]
     Indication: ACNE
     Dosage: 40 MG, QD, ORAL
     Route: 048
     Dates: start: 20030307, end: 20030427

REACTIONS (10)
  - ACNE FULMINANS [None]
  - ACNE PUSTULAR [None]
  - CYST [None]
  - HYPERSENSITIVITY [None]
  - LYMPHADENOPATHY [None]
  - PAIN [None]
  - PYREXIA [None]
  - SCAR [None]
  - STAPHYLOCOCCAL INFECTION [None]
  - WHITE BLOOD CELL COUNT INCREASED [None]
